FAERS Safety Report 11802807 (Version 1)
Quarter: 2015Q4

REPORT INFORMATION
  Report Type: Spontaneous
  Country: US (occurrence: US)
  Receive Date: 20151204
  Receipt Date: 20151204
  Transmission Date: 20160305
  Serious: No
  Sender: FDA-Public Use
  Company Number: US-BEH-2015051167

PATIENT
  Sex: Male
  Weight: 58 kg

DRUGS (8)
  1. SODIUM CHLORIDE. [Concomitant]
     Active Substance: SODIUM CHLORIDE
     Dosage: 0.9% 1-10 ML
     Route: 042
  2. PRILOSEC [Concomitant]
     Active Substance: OMEPRAZOLE MAGNESIUM
     Route: 048
  3. CHILD MULTIVITAMIN [Concomitant]
  4. STERILE WATER [Concomitant]
     Active Substance: WATER
     Dosage: RECONSTITUTED
     Route: 043
  5. EPIPEN [Concomitant]
     Active Substance: EPINEPHRINE
     Indication: ANAPHYLACTIC REACTION
     Route: 030
  6. BERINERT [Suspect]
     Active Substance: HUMAN C1-ESTERASE INHIBITOR
     Indication: HEREDITARY ANGIOEDEMA
     Route: 042
  7. CINRYZE [Concomitant]
     Active Substance: HUMAN C1-ESTERASE INHIBITOR
     Route: 042
  8. CEFDINIR. [Suspect]
     Active Substance: CEFDINIR
     Indication: EAR INFECTION

REACTIONS (2)
  - Rash [Unknown]
  - Ear infection [Unknown]
